FAERS Safety Report 9282232 (Version 1)
Quarter: 2013Q2

REPORT INFORMATION
  Report Type: Spontaneous
  Country: US (occurrence: None)
  Receive Date: 20130509
  Receipt Date: 20130509
  Transmission Date: 20140414
  Serious: Yes (Death)
  Sender: FDA-Public Use
  Company Number: None

PATIENT
  Sex: 0

DRUGS (1)
  1. SPIRIVA [Suspect]
     Indication: CHRONIC OBSTRUCTIVE PULMONARY DISEASE
     Dosage: CAPSULE DAILY INHAL
     Route: 055
     Dates: start: 20120601, end: 20130506

REACTIONS (2)
  - Cardio-respiratory arrest [None]
  - Dyspnoea [None]
